FAERS Safety Report 5674088-4 (Version None)
Quarter: 2008Q1

REPORT INFORMATION
  Report Type: 
  Country: None (occurrence: None)
  Receive Date: 20080320
  Receipt Date: 20080311
  Transmission Date: 20080703
  Serious: Yes (Other)
  Sender: FDA-Public Use
  Company Number: US-JNJFOC-20071109686

PATIENT
  Sex: Male
  Weight: 56.7 kg

DRUGS (7)
  1. DOXORUBICIN HCL [Suspect]
     Route: 042
  2. DOXORUBICIN HCL [Suspect]
     Indication: MULTIPLE MYELOMA
     Route: 042
  3. VELCADE [Suspect]
     Route: 042
  4. VELCADE [Suspect]
     Indication: MULTIPLE MYELOMA
     Route: 042
  5. DEXAMETHASONE [Concomitant]
     Route: 065
  6. ZETIA [Concomitant]
     Route: 065
  7. L-CARNITINE [Concomitant]
     Route: 065

REACTIONS (1)
  - BLOOD CHOLESTEROL INCREASED [None]
